FAERS Safety Report 21101496 (Version 2)
Quarter: 2022Q3

REPORT INFORMATION
  Report Type: Report from Study
  Country: CA (occurrence: CA)
  Receive Date: 20220719
  Receipt Date: 20220729
  Transmission Date: 20221027
  Serious: Yes (Hospitalization)
  Sender: FDA-Public Use
  Company Number: CA-HLS-202201346

PATIENT
  Age: 62 Year
  Sex: Female
  Weight: 58 kg

DRUGS (14)
  1. CLOZARIL [Suspect]
     Active Substance: CLOZAPINE
     Indication: Product used for unknown indication
     Route: 048
     Dates: start: 20201005, end: 20201208
  2. ATORVASTATIN [Concomitant]
     Active Substance: ATORVASTATIN
     Indication: Product used for unknown indication
     Dosage: 10MG BY MOUTH ONCE PER DAY AT BEDTIME WITH 1 ? TABLET OF 20 MG TOTAL OF 30 MG.
     Route: 048
     Dates: start: 20220413
  3. ATORVASTATIN [Concomitant]
     Active Substance: ATORVASTATIN
     Indication: Product used for unknown indication
     Dosage: 20 MG BY MOUTH ONCE PER DAY AT BEDTIME WITH 1 ? TABLET OF 20 MG TOTAL OF 30 MG.
     Route: 048
     Dates: start: 20220413
  4. GLUCOPHAGE [Concomitant]
     Active Substance: METFORMIN HYDROCHLORIDE
     Indication: Product used for unknown indication
     Dosage: 2 PILL (500MG)
     Route: 048
     Dates: start: 20220413
  5. GLUCOPHAGE [Concomitant]
     Active Substance: METFORMIN HYDROCHLORIDE
     Indication: Product used for unknown indication
     Dosage: 1 PILL, WITH MEAL OR SNACK
     Route: 048
     Dates: start: 20220413
  6. Damicron MR [Concomitant]
     Indication: Product used for unknown indication
     Route: 048
     Dates: start: 20220413
  7. Sodium cholride [Concomitant]
     Indication: Product used for unknown indication
     Dosage: 3 TIMES A DAY
     Route: 065
     Dates: start: 20220413
  8. SEROQUEL XR [Concomitant]
     Active Substance: QUETIAPINE FUMARATE
     Indication: Product used for unknown indication
     Dosage: ONCE A DAY AT SUPER FRO 2 DAYS THEN , REDUCED TO 800 MG ONCE A DAY FOR 2 DAYS THEN REDUCED TO 600 MG
     Route: 048
     Dates: start: 20220413
  9. LAMICTAL [Concomitant]
     Active Substance: LAMOTRIGINE
     Indication: Product used for unknown indication
     Dosage: 12.5 MG= 1/2 CO BY MOUTH ONCE A DAY
     Route: 048
     Dates: start: 20220413
  10. ACETAMINOPHEN [Concomitant]
     Active Substance: ACETAMINOPHEN
     Indication: Product used for unknown indication
     Dosage: 325 MG : 2 PILL EVERY 6 HOURS IF PAIN.
     Route: 048
     Dates: start: 20220413
  11. BASAGLAR [Concomitant]
     Active Substance: INSULIN GLARGINE
     Indication: Product used for unknown indication
     Dosage: 16 UNIT ONCE A DAY AT BEDTIME
     Route: 058
     Dates: start: 20220413
  12. JARDIANCE [Concomitant]
     Active Substance: EMPAGLIFLOZIN
     Indication: Product used for unknown indication
     Route: 048
     Dates: start: 20220413
  13. JANUVIA [Concomitant]
     Active Substance: SITAGLIPTIN PHOSPHATE
     Indication: Product used for unknown indication
     Dosage: WITH BREAKFAST
     Route: 048
     Dates: start: 20220413
  14. ZYPREXA [Concomitant]
     Active Substance: OLANZAPINE
     Indication: Product used for unknown indication
     Dosage: 10 MG IN THE MORNING + 20 MG  AT BEDTIME
     Route: 048
     Dates: start: 20220413

REACTIONS (5)
  - Blood chloride decreased [Unknown]
  - Haematocrit decreased [Unknown]
  - Haemoglobin decreased [Unknown]
  - Monocyte count increased [Unknown]
  - Blood sodium decreased [Unknown]

NARRATIVE: CASE EVENT DATE: 20220627
